FAERS Safety Report 9485949 (Version 1)
Quarter: 2013Q3

REPORT INFORMATION
  Report Type: Spontaneous
  Country: US (occurrence: None)
  Receive Date: 20130820
  Receipt Date: 20130820
  Transmission Date: 20140515
  Serious: Yes (Hospitalization)
  Sender: FDA-Public Use
  Company Number: SYM-2013-07583

PATIENT
  Age: 54 Year
  Sex: Female

DRUGS (10)
  1. WELLBUTRIN XL [Suspect]
     Indication: DEPRESSION
     Route: 048
     Dates: start: 201201, end: 20130525
  2. ZOLPIDEM (ZOLPIDEM) (ZOLPIDEM) [Suspect]
     Indication: INSOMNIA
     Route: 048
     Dates: start: 2010, end: 20130524
  3. ABILIFY (ARIPIRAZOLE) [Suspect]
     Indication: DEPRESSION
     Route: 048
     Dates: start: 201201, end: 20130525
  4. PROZAC (FLUOXETINE HYDROCHLORIDE) (FLUOXETINE HYDROCHLORIDE) [Suspect]
     Indication: DEPRESSION
     Route: 048
     Dates: start: 2003, end: 20130525
  5. FLUTICASONE FUROATE [Suspect]
     Dates: start: 20130122, end: 20130524
  6. ALPRAZOLAM (ALPRAZOLAM) (ALPRAZOLAM) [Suspect]
     Route: 048
  7. ASPIRIN  (ACETYLSALICYLIC ACID) (ACETYLSALICYLIC ACID) [Concomitant]
  8. ALBUTEROL (SALBUTAMOL) (SALBUTAMOL) [Concomitant]
  9. NAPROXEN (NAPROXEN) (NAPROXEN) [Concomitant]
  10. ATORVASTATIN CALCIUM (ATORVASTATIN CALCIUM) (ATORVASTATIN CALCIUM) [Concomitant]

REACTIONS (1)
  - Suicidal behaviour [None]
